FAERS Safety Report 7530472 (Version 6)
Quarter: 2012Q4

REPORT INFORMATION
  Report Type: 
  Country: US (occurrence: US)
  Receive Date: 20100806
  Receipt Date: 20120927
  Transmission Date: 20130627
  Serious: Yes (Disabling, Other)
  Sender: FDA-Public Use
  Company Number: US-PFIZER INC-2010094806

PATIENT
  Age: 50 Year
  Sex: Female
  Weight: 113 kg

DRUGS (6)
  1. LOPID [Suspect]
     Indication: COMPLEX REGIONAL PAIN SYNDROME
     Dosage: 1200 mg, 3x/day
     Route: 048
     Dates: start: 200909, end: 20090918
  2. GABAPENTIN [Suspect]
     Dosage: UNK
     Dates: start: 2005
  3. NORCO [Concomitant]
     Indication: PAIN
     Dosage: [hydrocodone bitartrate 10]/[acetaminophen 325 mg]
     Route: 048
  4. NORCO [Concomitant]
     Dosage: UNK
  5. CYMBALTA [Concomitant]
     Dosage: 60 mg, daily
  6. CYMBALTA [Concomitant]
     Dosage: UNK, 1x/day

REACTIONS (32)
  - Wrong drug administered [Unknown]
  - Drug dispensing error [Unknown]
  - Accidental overdose [Not Recovered/Not Resolved]
  - Muscular weakness [Not Recovered/Not Resolved]
  - Vision blurred [Not Recovered/Not Resolved]
  - Pyrexia [Not Recovered/Not Resolved]
  - Haemorrhagic diathesis [Not Recovered/Not Resolved]
  - Complex regional pain syndrome [Not Recovered/Not Resolved]
  - Dysgeusia [Not Recovered/Not Resolved]
  - Diarrhoea [Not Recovered/Not Resolved]
  - Malaise [Not Recovered/Not Resolved]
  - Dizziness [Not Recovered/Not Resolved]
  - Headache [Not Recovered/Not Resolved]
  - Dysstasia [Not Recovered/Not Resolved]
  - Abdominal pain upper [Not Recovered/Not Resolved]
  - Abdominal discomfort [Not Recovered/Not Resolved]
  - Dry mouth [Not Recovered/Not Resolved]
  - Oropharyngeal pain [Not Recovered/Not Resolved]
  - Cough [Not Recovered/Not Resolved]
  - Thinking abnormal [Not Recovered/Not Resolved]
  - Contusion [Not Recovered/Not Resolved]
  - Asthenia [Not Recovered/Not Resolved]
  - Dyspnoea [Not Recovered/Not Resolved]
  - Dyspepsia [Not Recovered/Not Resolved]
  - Vertigo [Not Recovered/Not Resolved]
  - Pain [Not Recovered/Not Resolved]
  - Rhinorrhoea [Not Recovered/Not Resolved]
  - Laceration [Not Recovered/Not Resolved]
  - Anaemia [Not Recovered/Not Resolved]
  - Skin sensitisation [Not Recovered/Not Resolved]
  - Fatigue [Not Recovered/Not Resolved]
  - Thyroid function test abnormal [Not Recovered/Not Resolved]
